FAERS Safety Report 7029094-4 (Version None)
Quarter: 2010Q4

REPORT INFORMATION
  Report Type: 
  Country: None (occurrence: None)
  Receive Date: 20101005
  Receipt Date: 20100925
  Transmission Date: 20110411
  Serious: Yes (Other)
  Sender: FDA-Public Use
  Company Number: B0677549A

PATIENT
  Age: 26 Year
  Sex: Male

DRUGS (2)
  1. RELENZA [Suspect]
     Indication: INFLUENZA
     Dosage: 10MG TWICE PER DAY
     Route: 055
     Dates: start: 20100831, end: 20100904
  2. AMINOPHENAZONE [Concomitant]
     Dates: start: 20100831, end: 20100901

REACTIONS (1)
  - LEUKOPENIA [None]
